FAERS Safety Report 10527694 (Version 1)
Quarter: 2014Q4

REPORT INFORMATION
  Report Type: Spontaneous
  Country: US (occurrence: US)
  Receive Date: 20141020
  Receipt Date: 20141020
  Transmission Date: 20150528
  Serious: No
  Sender: FDA-Public Use
  Company Number: US-ASTRAZENECA-2014SE69350

PATIENT
  Age: 67 Year
  Sex: Male
  Weight: 111.1 kg

DRUGS (6)
  1. SYMBICORT [Suspect]
     Active Substance: BUDESONIDE\FORMOTEROL FUMARATE DIHYDRATE
     Indication: CHRONIC OBSTRUCTIVE PULMONARY DISEASE
     Dosage: 160/4.5MCG, TWO PUFFS BID
     Route: 055
     Dates: start: 20140828
  2. SPIRIVA [Concomitant]
     Active Substance: TIOTROPIUM BROMIDE MONOHYDRATE
     Indication: CHRONIC OBSTRUCTIVE PULMONARY DISEASE
     Dosage: 2 PUFFS DAILY
     Route: 055
     Dates: start: 20140830
  3. POTASSIUM [Concomitant]
     Active Substance: POTASSIUM
     Route: 048
     Dates: start: 20140730
  4. SYMBICORT [Suspect]
     Active Substance: BUDESONIDE\FORMOTEROL FUMARATE DIHYDRATE
     Indication: CHRONIC OBSTRUCTIVE PULMONARY DISEASE
     Dosage: 320MCG BID
     Route: 055
     Dates: start: 20140830
  5. FUROSEMIDE. [Concomitant]
     Active Substance: FUROSEMIDE
     Indication: FLUID RETENTION
     Route: 048
     Dates: start: 20140730
  6. TRIAMPTERINE/HCTZ [Concomitant]
     Indication: BLOOD PRESSURE
     Dosage: 37.5/25 DAILY
     Route: 048
     Dates: start: 201401

REACTIONS (3)
  - Musculoskeletal discomfort [Unknown]
  - Insomnia [Unknown]
  - Dyspepsia [Unknown]

NARRATIVE: CASE EVENT DATE: 201409
